FAERS Safety Report 16063505 (Version 1)
Quarter: 2019Q1

REPORT INFORMATION
  Report Type: Spontaneous
  Country: RU (occurrence: RU)
  Receive Date: 20190312
  Receipt Date: 20190312
  Transmission Date: 20190418
  Serious: Yes (Hospitalization)
  Sender: FDA-Public Use
  Company Number: RU-BAYER-2019-050513

PATIENT
  Age: 65 Year
  Sex: Female
  Weight: 97 kg

DRUGS (1)
  1. ULTRAVIST [Suspect]
     Active Substance: IOPROMIDE
     Dosage: 100 ML, ONCE
     Route: 042
     Dates: start: 20190307, end: 20190307

REACTIONS (8)
  - Sensation of foreign body [None]
  - Abdominal pain lower [None]
  - Dyspnoea [None]
  - Blood pressure decreased [None]
  - Swelling [None]
  - Heart rate decreased [None]
  - Rash vesicular [None]
  - Blood pressure increased [Recovered/Resolved]

NARRATIVE: CASE EVENT DATE: 20190307
